FAERS Safety Report 9577637 (Version 1)
Quarter: 2013Q4

REPORT INFORMATION
  Report Type: Spontaneous
  Country: US (occurrence: US)
  Receive Date: 20131001
  Receipt Date: 20131001
  Transmission Date: 20140711
  Serious: No
  Sender: FDA-Public Use
  Company Number: US-AMGEN-USASP2013008744

PATIENT
  Sex: Female
  Weight: 99.77 kg

DRUGS (3)
  1. ENBREL [Suspect]
     Indication: PRODUCT USED FOR UNKNOWN INDICATION
     Dosage: 50 MG/ML, QWK
     Route: 058
  2. HUMIRA [Concomitant]
     Dosage: UNK
  3. PAXIL CR [Concomitant]
     Dosage: 25 MG, UNK

REACTIONS (1)
  - Drug effect decreased [Unknown]
